FAERS Safety Report 8358846-3 (Version None)
Quarter: 2012Q2

REPORT INFORMATION
  Report Type: 
  Country: None (occurrence: None)
  Receive Date: 20120515
  Receipt Date: 20120507
  Transmission Date: 20120825
  Serious: Yes (Hospitalization)
  Sender: FDA-Public Use
  Company Number: US-AMGEN-USASP2012029012

PATIENT
  Age: 51 Year
  Sex: Female

DRUGS (2)
  1. ENBREL [Suspect]
     Indication: RHEUMATOID ARTHRITIS
     Dosage: 50 MG, QWK
     Dates: start: 20040101, end: 20090414
  2. ANTIBIOTICS [Concomitant]

REACTIONS (7)
  - DEVICE BREAKAGE [None]
  - FALL [None]
  - SPINAL FRACTURE [None]
  - STAPHYLOCOCCAL INFECTION [None]
  - EXOSTOSIS [None]
  - PAIN [None]
  - ARTHRALGIA [None]
